FAERS Safety Report 6787473-4 (Version None)
Quarter: 2010Q2

REPORT INFORMATION
  Report Type: 
  Country: None (occurrence: None)
  Receive Date: 20100623
  Receipt Date: 20100611
  Transmission Date: 20101027
  Serious: Yes (Other)
  Sender: FDA-Public Use
  Company Number: US-JNJCH-2010012172

PATIENT
  Age: 3 Year
  Sex: Male

DRUGS (1)
  1. CHILDREN'S ZYRTEC ALLERGY [Suspect]
     Indication: MIDDLE EAR EFFUSION
     Dosage: TEXT:UNKNOWN
     Route: 048
     Dates: start: 20100213, end: 20100310

REACTIONS (5)
  - COUGH [None]
  - HAEMOPTYSIS [None]
  - OFF LABEL USE [None]
  - PRODUCT QUALITY ISSUE [None]
  - PYREXIA [None]
